FAERS Safety Report 21710442 (Version 3)
Quarter: 2023Q1

REPORT INFORMATION
  Report Type: Spontaneous
  Country: US (occurrence: US)
  Receive Date: 20221211
  Receipt Date: 20230308
  Transmission Date: 20230417
  Serious: Yes (Hospitalization)
  Sender: FDA-Public Use
  Company Number: US-BIOVITRUM-2022US14339

PATIENT
  Age: 5 Month
  Sex: Male
  Weight: 9 kg

DRUGS (7)
  1. SYNAGIS [Suspect]
     Active Substance: PALIVIZUMAB
     Indication: Antiviral prophylaxis
     Dosage: 15 MG/KG OF 100 MG AND 50 MG INTO THE MUSCLE
     Route: 030
     Dates: start: 202210
  2. SYNAGIS [Suspect]
     Active Substance: PALIVIZUMAB
     Indication: Cystic fibrosis
  3. KALYDECO [Concomitant]
     Active Substance: IVACAFTOR
  4. ONDANSETRON [Concomitant]
     Active Substance: ONDANSETRON
  5. ALBUTEROL SULFATE [Concomitant]
     Active Substance: ALBUTEROL SULFATE
  6. FAMOTIDINE [Concomitant]
     Active Substance: FAMOTIDINE
  7. AMITRIPTYLINE [Concomitant]
     Active Substance: AMITRIPTYLINE

REACTIONS (5)
  - Infection [Unknown]
  - Influenza [Not Recovered/Not Resolved]
  - Product dose omission issue [Unknown]
  - Respiratory syncytial virus infection [Not Recovered/Not Resolved]
  - Viral infection [Unknown]

NARRATIVE: CASE EVENT DATE: 20221124
